FAERS Safety Report 6374671 (Version 17)
Quarter: 2014Q2

REPORT INFORMATION
  Report Type: Spontaneous
  Country: US (occurrence: US)
  Receive Date: 20070803
  Receipt Date: 20140409
  Transmission Date: 20141212
  Serious: Yes (Hospitalization, Other)
  Sender: FDA-Public Use
  Company Number: US-ROCHE-495934

PATIENT
  Age: 34 Year
  Sex: Female
  Weight: 87.1 kg

DRUGS (7)
  1. ACCUTANE [Suspect]
     Indication: ACNE CYSTIC
     Route: 048
     Dates: start: 20040802, end: 20040830
  2. ACCUTANE [Suspect]
     Dosage: REPORTED IN F/U NOTE ACCUTANE 60 MG ORALLY DAILY
     Route: 048
  3. ACCUTANE [Suspect]
     Dosage: REPORTED AS 40MG PO BID
     Route: 048
     Dates: start: 20041026, end: 20041104
  4. ACCUTANE [Suspect]
     Dosage: REPORTED AS 60MG PO OD
     Route: 048
     Dates: start: 20041105, end: 200501
  5. ACCUTANE [Suspect]
     Dosage: REPORTED AS 40MG BID FOR 2 MONTHS
     Route: 048
     Dates: start: 20050105, end: 200503
  6. SOTRET [Suspect]
     Indication: ACNE
     Dosage: REPORTED ACCUTANE 40 MG ORALLY DAILY THEN 1 ORALLY TWICE DAILY ON 31 AUG 2004 F/U NOTE
     Route: 048
     Dates: start: 20040802, end: 20050110
  7. IBUPROFEN [Concomitant]
     Route: 048

REACTIONS (37)
  - Gastroenteritis [Unknown]
  - Gallbladder disorder [Unknown]
  - Deep vein thrombosis [Unknown]
  - Hepatomegaly [Unknown]
  - Liver disorder [Unknown]
  - Renal lipomatosis [Unknown]
  - Cardiac septal hypertrophy [Unknown]
  - Asthma [Not Recovered/Not Resolved]
  - Lymphadenopathy [Not Recovered/Not Resolved]
  - Trigeminal neuralgia [Unknown]
  - Bipolar disorder [Not Recovered/Not Resolved]
  - Hepatic congestion [Unknown]
  - Renal disorder [Unknown]
  - Hydronephrosis [Unknown]
  - Splenomegaly [Unknown]
  - Gout [Unknown]
  - Depression [Unknown]
  - Anxiety [Unknown]
  - Gastrointestinal disorder [Unknown]
  - Arthritis [Unknown]
  - Dizziness [Unknown]
  - Headache [Unknown]
  - Night blindness [Unknown]
  - Cardiac disorder [Unknown]
  - Panic attack [Unknown]
  - Hepatic enzyme increased [Unknown]
  - Gastritis [Unknown]
  - Mitral valve prolapse [Unknown]
  - Mitral valve incompetence [Unknown]
  - Tricuspid valve incompetence [Unknown]
  - Pulmonary valve incompetence [Unknown]
  - Sinus bradycardia [Unknown]
  - Ventricular extrasystoles [Unknown]
  - Foot fracture [Unknown]
  - Acne [Recovered/Resolved]
  - Hair growth abnormal [Unknown]
  - Erythema [Unknown]
